FAERS Safety Report 6633672-1 (Version None)
Quarter: 2010Q1

REPORT INFORMATION
  Report Type: 
  Country: None (occurrence: None)
  Receive Date: 20100312
  Receipt Date: 20100308
  Transmission Date: 20100710
  Serious: Yes (Hospitalization, Other)
  Sender: FDA-Public Use
  Company Number: AR-AMGEN-ICO328462

PATIENT
  Sex: Female

DRUGS (5)
  1. DARBEPOETIN ALFA [Suspect]
     Indication: RENAL FAILURE CHRONIC
     Route: 058
     Dates: start: 20071112, end: 20090128
  2. FUROSEMIDE [Concomitant]
     Route: 048
     Dates: start: 20081008
  3. INSULIN [Concomitant]
     Route: 058
     Dates: start: 20081104
  4. AMLODIPINE [Concomitant]
     Route: 048
     Dates: start: 20070101
  5. ENALAPRIL MALEATE [Concomitant]
     Route: 048
     Dates: start: 20070926

REACTIONS (2)
  - CARDIAC FAILURE CONGESTIVE [None]
  - RENAL FAILURE CHRONIC [None]
